FAERS Safety Report 5399746-0 (Version None)
Quarter: 2007Q3

REPORT INFORMATION
  Report Type: 
  Country: None (occurrence: None)
  Receive Date: 20070727
  Receipt Date: 20070717
  Transmission Date: 20080115
  Serious: Yes (Other)
  Sender: FDA-Public Use
  Company Number: FR-PFIZER INC-2007060557

PATIENT
  Sex: Female

DRUGS (1)
  1. CHAMPIX [Suspect]

REACTIONS (5)
  - BLISTER [None]
  - BODY TEMPERATURE INCREASED [None]
  - LOCAL SWELLING [None]
  - RASH [None]
  - SKIN EXFOLIATION [None]
